FAERS Safety Report 9177220 (Version 1)
Quarter: 2013Q1

REPORT INFORMATION
  Report Type: Spontaneous
  Country: FR (occurrence: None)
  Receive Date: 20130319
  Receipt Date: 20130319
  Transmission Date: 20140127
  Serious: Yes (Hospitalization)
  Sender: FDA-Public Use
  Company Number: DSM-2013-00331

PATIENT
  Age: 71 Year
  Sex: Male

DRUGS (17)
  1. AMLODIPINE BESYLATE\OLMESARTAN MEDOXOMIL [Suspect]
     Indication: HYPERTENSION
     Route: 048
     Dates: end: 20121113
  2. DIAMOX(ACETAZOLAMIDE SODIUM)(ACETAZOLAMIDE SODIUM) [Suspect]
     Indication: OEDEMA
     Dosage: 1 DOSAGE FORMS (1 DOSAGE FORMS, 1 IN 1 D) , ORAL
     Route: 048
     Dates: start: 20121009, end: 20121113
  3. NATISPRAY(GLYCERYL TRINITRATE)(GLYCERYL TRINITRATE) [Concomitant]
  4. KARDEGIC(ACETYLSALICYLIC ACID, ACETYLSALICYLATE LYSINE) (75 MILLIGRAM)(ACETYLSALICYLIC ACID, ACETYLSALICYLATE LYSINE) [Concomitant]
  5. BISOPROLOL(BISOPROLOL)(10 MILLIGRAM)(BISOPROLOL) [Concomitant]
  6. PREDNISOLONE(PREDNISOLONE)(15 MILLIGRAM)(PREDNISOLONE) [Concomitant]
  7. DIFFU K(POTASSIUM CHLORIDE) (CAPSULE)(POTASSIUM CHLORIDE) [Concomitant]
  8. FUROSEMIDE(FUROSEMIDE)(20 MILLIGRAM)(FUROSEMIDE [Concomitant]
  9. FLUVASTATINE BASE(FLUVASTATIN)(80 MILLIGRAM)(FLUVASTATIN) [Concomitant]
  10. FORADIL(FORMOTEROL)(12 MICROGRAM, INHALATION POWDER)(FORMOTEROL) [Concomitant]
  11. SPIRIVA(TIOTROPIUM BROMIDE)(18 MICROGRAM, INHALATION POWDER)(TIOTROPIUM BROMIDE) [Concomitant]
  12. EUCREAS(METFORMIN HYDROCHLORIDE, VILDAGLIPTIN)(TABLET) (METFORMIN HYDROCHLORIDE, VILDAGLIPTIN) [Concomitant]
  13. LANTUS(INSULIN GLARGINE)(10 IU (INTERNATIONAL UNIT))(INSULIN GLARGINE) [Concomitant]
  14. DEXAFREE(DEXAMETHASONE)(DEXAMETHASONE) [Concomitant]
  15. CLOPIDOGREL(CLOPIDOGREL)(CLOPIDOGREL) [Concomitant]
  16. HEXAQUINE(THIAMINE HYDROCHLORIDE, QUININE BENZOATE, MELALEUCA VIRIDIFLORA OIL)(THIAMINE HYDROCHLORIDE, QUININE BENZOATE, MELALEUCA VIRIDIFLORA OIL) [Concomitant]
  17. ACULAR(KETOROLAC) (KETOROLAC) [Concomitant]

REACTIONS (2)
  - Lichenoid keratosis [None]
  - Drug eruption [None]
